FAERS Safety Report 17402089 (Version 1)
Quarter: 2020Q1

REPORT INFORMATION
  Report Type: Spontaneous
  Country: PL (occurrence: PL)
  Receive Date: 20200211
  Receipt Date: 20200211
  Transmission Date: 20200409
  Serious: Yes (Death, Other)
  Sender: FDA-Public Use
  Company Number: NVSC2020PL035474

PATIENT
  Age: 8 Year
  Sex: Female

DRUGS (1)
  1. VALPROATE ACID [Suspect]
     Active Substance: VALPROATE SODIUM
     Indication: EPILEPSY
     Dosage: UNK
     Route: 065

REACTIONS (5)
  - Death [Fatal]
  - Pancreatitis acute [Unknown]
  - Hepatic failure [Unknown]
  - Abdominal pain [Unknown]
  - Vomiting [Unknown]
